FAERS Safety Report 14055448 (Version 3)
Quarter: 2018Q1

REPORT INFORMATION
  Report Type: Spontaneous
  Country: FR (occurrence: FR)
  Receive Date: 20171006
  Receipt Date: 20180109
  Transmission Date: 20180508
  Serious: Yes (Hospitalization)
  Sender: FDA-Public Use
  Company Number: FR-ROCHE-2002091

PATIENT
  Age: 2 Year
  Sex: Male
  Weight: 13 kg

DRUGS (11)
  1. METHYLPREDNISOLONE MYLAN [Suspect]
     Active Substance: METHYLPREDNISOLONE
     Indication: BONE MARROW TRANSPLANT
     Route: 042
     Dates: start: 201707
  2. SANDIMMUN [Suspect]
     Active Substance: CYCLOSPORINE
     Route: 042
     Dates: start: 20170902
  3. CELLCEPT [Suspect]
     Active Substance: MYCOPHENOLATE MOFETIL\MYCOPHENOLATE MOFETIL HYDROCHLORIDE
     Indication: BONE MARROW TRANSPLANT
     Route: 042
     Dates: start: 20170725, end: 20170820
  4. METHYLPREDNISOLONE MYLAN [Suspect]
     Active Substance: METHYLPREDNISOLONE
     Route: 042
  5. SANDIMMUN [Suspect]
     Active Substance: CYCLOSPORINE
     Route: 042
     Dates: start: 20170821
  6. SANDIMMUN [Suspect]
     Active Substance: CYCLOSPORINE
     Route: 042
     Dates: start: 20170831
  7. SANDIMMUN [Suspect]
     Active Substance: CYCLOSPORINE
     Route: 042
     Dates: start: 20170909
  8. SANDIMMUN [Suspect]
     Active Substance: CYCLOSPORINE
     Route: 042
     Dates: start: 20170912
  9. SANDIMMUN [Suspect]
     Active Substance: CYCLOSPORINE
     Route: 042
     Dates: start: 20170806
  10. SANDIMMUN [Suspect]
     Active Substance: CYCLOSPORINE
     Route: 042
     Dates: start: 20170812
  11. SANDIMMUN [Suspect]
     Active Substance: CYCLOSPORINE
     Indication: BONE MARROW TRANSPLANT
     Route: 042
     Dates: start: 20170721

REACTIONS (6)
  - Product use in unapproved indication [Unknown]
  - Diarrhoea [Recovering/Resolving]
  - Off label use [Unknown]
  - Ulcerative gastritis [Recovering/Resolving]
  - Vomiting [Recovering/Resolving]
  - Colitis ulcerative [Recovering/Resolving]

NARRATIVE: CASE EVENT DATE: 20170903
